FAERS Safety Report 9919060 (Version 1)
Quarter: 2014Q1

REPORT INFORMATION
  Report Type: Spontaneous
  Country: US (occurrence: US)
  Receive Date: 20140224
  Receipt Date: 20140224
  Transmission Date: 20141002
  Serious: No
  Sender: FDA-Public Use
  Company Number: US-BAYER-2014-025837

PATIENT
  Age: 55 Year
  Sex: Female
  Weight: 64.4 kg

DRUGS (3)
  1. CLIMARA [Suspect]
     Indication: HOT FLUSH
     Dosage: 0.1 MG/D, OW
     Route: 062
     Dates: start: 201212
  2. SINGULAIR [Concomitant]
     Indication: HYPERSENSITIVITY
     Dosage: 10 MG, QD
     Route: 048
     Dates: start: 2009
  3. CRESTOR [Concomitant]
     Indication: BLOOD CHOLESTEROL INCREASED
     Dosage: 10 MG/D, QD
     Route: 048
     Dates: start: 201401

REACTIONS (3)
  - Dry eye [Not Recovered/Not Resolved]
  - Alopecia [Recovering/Resolving]
  - Foreign body in eye [Not Recovered/Not Resolved]
